FAERS Safety Report 7551866 (Version 4)
Quarter: 2016Q2

REPORT INFORMATION
  Report Type: Report from Study
  Country: PT (occurrence: PT)
  Receive Date: 20100824
  Receipt Date: 20160509
  Transmission Date: 20160815
  Serious: Yes (Hospitalization)
  Sender: FDA-Public Use
  Company Number: PHHO2010PT12499

PATIENT
  Age: 57 Year
  Sex: Male
  Weight: 74.5 kg

DRUGS (4)
  1. ALISKIREN [Suspect]
     Active Substance: ALISKIREN
     Dosage: 300 MG
     Route: 048
     Dates: start: 20100713
  2. ALISKIREN [Suspect]
     Active Substance: ALISKIREN
     Dosage: RUN IN PHASE
     Route: 048
     Dates: start: 20100629, end: 20100713
  3. ENALAPRIL [Suspect]
     Active Substance: ENALAPRIL
     Indication: CARDIAC FAILURE
     Dosage: RUN IN PHASE
     Route: 048
     Dates: start: 20100602, end: 20100629
  4. ENALAPRIL [Suspect]
     Active Substance: ENALAPRIL
     Dosage: 10 MG, BID
     Route: 048
     Dates: start: 20100713

REACTIONS (3)
  - Acute kidney injury [Recovered/Resolved]
  - Ventricular tachycardia [Unknown]
  - Blood creatinine increased [Recovered/Resolved]

NARRATIVE: CASE EVENT DATE: 20100728
